FAERS Safety Report 17706892 (Version 1)
Quarter: 2020Q2

REPORT INFORMATION
  Report Type: Spontaneous
  Country: JP (occurrence: JP)
  Receive Date: 20200424
  Receipt Date: 20200424
  Transmission Date: 20200714
  Serious: Yes (Other)
  Sender: FDA-Public Use
  Company Number: JP-PFIZER INC-2020161878

PATIENT
  Age: 73 Year
  Sex: Male

DRUGS (6)
  1. LYRICA [Suspect]
     Active Substance: PREGABALIN
     Dosage: 50 MG, 2X/DAY
     Route: 048
     Dates: start: 20200414, end: 20200414
  2. RILMAZAFONE HYDROCHLORIDE [Concomitant]
     Active Substance: RILMAZAFONE HYDROCHLORIDE
     Dosage: 2 MG, 1X/DAY
     Route: 048
     Dates: start: 20200328
  3. AMLODIPINE [Concomitant]
     Active Substance: AMLODIPINE BESYLATE
     Dosage: 10 MG, 1X/DAY
     Route: 048
     Dates: start: 20200325
  4. SENNOSIDE SAWAI [Concomitant]
     Dosage: 24 MG, 1X/DAY
     Route: 048
     Dates: start: 20200324
  5. CANDESARTAN. [Concomitant]
     Active Substance: CANDESARTAN
     Dosage: 4 MG, 1X/DAY
     Route: 048
     Dates: start: 20200325
  6. LYRICA [Suspect]
     Active Substance: PREGABALIN
     Indication: NEUROPATHY PERIPHERAL
     Dosage: 25 MG, 2X/DAY
     Route: 048
     Dates: start: 20200324, end: 20200413

REACTIONS (3)
  - Urticaria [Not Recovered/Not Resolved]
  - Erythema [Not Recovered/Not Resolved]
  - Pruritus [Unknown]

NARRATIVE: CASE EVENT DATE: 20200414
